FAERS Safety Report 11579980 (Version 1)
Quarter: 2015Q3

REPORT INFORMATION
  Report Type: Spontaneous
  Country: US (occurrence: US)
  Receive Date: 20150916
  Receipt Date: 20150916
  Transmission Date: 20151125
  Serious: No
  Sender: FDA-Public Use
  Company Number: US-ELI_LILLY_AND_COMPANY-US200805000824

PATIENT
  Sex: Female

DRUGS (7)
  1. FORTEO [Suspect]
     Active Substance: TERIPARATIDE
     Dosage: UNK, UNK
     Dates: start: 20080402, end: 20080422
  2. COZAAR [Concomitant]
     Active Substance: LOSARTAN POTASSIUM
     Dosage: UNK, DAILY (1/D)
  3. METOPROLOL [Concomitant]
     Active Substance: METOPROLOL
     Dosage: 100 MG, 2/D
  4. WARFARIN [Concomitant]
     Active Substance: WARFARIN
     Dosage: FOR 6 DAYS
  5. AMIODARONE [Concomitant]
     Active Substance: AMIODARONE
     Dosage: 5/50 MG
  6. SYNTHROID [Concomitant]
     Active Substance: LEVOTHYROXINE SODIUM
     Dosage: 40 MG, UNK
  7. WARFARIN [Concomitant]
     Active Substance: WARFARIN
     Dosage: 1 DAY

REACTIONS (1)
  - Prothrombin time prolonged [Unknown]

NARRATIVE: CASE EVENT DATE: 20080418
